FAERS Safety Report 6618073-4 (Version None)
Quarter: 2010Q1

REPORT INFORMATION
  Report Type: 
  Country: None (occurrence: None)
  Receive Date: 20100308
  Receipt Date: 20100224
  Transmission Date: 20100710
  Serious: Yes (Hospitalization, Other)
  Sender: FDA-Public Use
  Company Number: JP-ROCHE-574436

PATIENT
  Sex: Female
  Weight: 52 kg

DRUGS (22)
  1. TOCILIZUMAB [Suspect]
     Indication: RHEUMATOID ARTHRITIS
     Route: 041
     Dates: start: 20080430, end: 20080430
  2. TOCILIZUMAB [Suspect]
     Route: 041
     Dates: start: 20080528, end: 20080528
  3. TOCILIZUMAB [Suspect]
     Route: 041
     Dates: start: 20080626, end: 20080626
  4. TOCILIZUMAB [Suspect]
     Route: 041
     Dates: start: 20080827, end: 20080827
  5. TOCILIZUMAB [Suspect]
     Route: 041
     Dates: start: 20080924, end: 20080924
  6. TOCILIZUMAB [Suspect]
     Route: 041
     Dates: start: 20081029
  7. METHOTREXATE [Suspect]
     Indication: RHEUMATOID ARTHRITIS
     Route: 048
     Dates: end: 20080429
  8. METHOTREXATE [Suspect]
     Route: 048
     Dates: start: 20080430, end: 20080702
  9. PREDONINE [Suspect]
     Indication: RHEUMATOID ARTHRITIS
     Route: 048
     Dates: end: 20080129
  10. PREDONINE [Suspect]
     Route: 048
     Dates: start: 20080130, end: 20080226
  11. PREDONINE [Suspect]
     Route: 048
     Dates: start: 20080227, end: 20080325
  12. PREDONINE [Suspect]
     Route: 048
     Dates: start: 20080326, end: 20080429
  13. PREDONINE [Suspect]
     Route: 048
     Dates: start: 20080430, end: 20080527
  14. PREDONINE [Suspect]
     Route: 048
     Dates: start: 20080528, end: 20080722
  15. PREDONINE [Suspect]
     Route: 048
     Dates: start: 20080723, end: 20080826
  16. PREDONINE [Suspect]
     Route: 048
     Dates: start: 20080827
  17. CEFTRIAXONE SODIUM [Suspect]
     Indication: RHEUMATOID ARTHRITIS
     Route: 050
     Dates: start: 20080702, end: 20080714
  18. NABOAL [Concomitant]
     Dosage: DRUG REPORTED AS NABOAL SR; FORM REPORTED AS SUSTAINED RELEASE CAPSULE
     Route: 048
     Dates: start: 20080626
  19. PROTECADIN [Concomitant]
     Route: 048
  20. RHEUMATREX [Concomitant]
     Route: 048
     Dates: start: 20080813
  21. ISONIAZID [Concomitant]
     Dosage: DOSE FORM REPORTED AS ORAL FORMULATION (NOS)
     Route: 048
     Dates: start: 20080813
  22. SALAGEN [Concomitant]
     Route: 048
     Dates: start: 20080806

REACTIONS (6)
  - BRONCHITIS [None]
  - GASTROENTERITIS [None]
  - HEPATIC FUNCTION ABNORMAL [None]
  - HERPES ZOSTER [None]
  - LYMPHADENOPATHY [None]
  - TUBERCULOSIS TEST POSITIVE [None]
